FAERS Safety Report 4650292-9 (Version None)
Quarter: 2005Q2

REPORT INFORMATION
  Report Type: 
  Country: None (occurrence: None)
  Receive Date: 20050428
  Receipt Date: 20050418
  Transmission Date: 20051028
  Serious: Yes (Hospitalization)
  Sender: FDA-Public Use
  Company Number: A03200500992

PATIENT
  Age: 31 Year
  Sex: Female

DRUGS (2)
  1. AMBIEN [Suspect]
     Dosage: ORAL
     Route: 048
     Dates: start: 20050404, end: 20050404
  2. PRENATAL VITAMINS [Concomitant]

REACTIONS (2)
  - DRUG EXPOSURE DURING PREGNANCY [None]
  - STILLBIRTH [None]
